FAERS Safety Report 14580003 (Version 2)
Quarter: 2018Q2

REPORT INFORMATION
  Report Type: Spontaneous
  Country: BE (occurrence: BE)
  Receive Date: 20180228
  Receipt Date: 20180426
  Transmission Date: 20180711
  Serious: Yes (Hospitalization, Other)
  Sender: FDA-Public Use
  Company Number: BE-ASTRAZENECA-2018SE22581

PATIENT
  Age: 703 Month
  Sex: Female
  Weight: 87 kg

DRUGS (2)
  1. L-THYROXINE [Concomitant]
     Active Substance: LEVOTHYROXINE
     Dosage: 75 ?G
  2. TAGRISSO [Suspect]
     Active Substance: OSIMERTINIB
     Indication: LUNG ADENOCARCINOMA
     Route: 048
     Dates: start: 20160901

REACTIONS (5)
  - Tinnitus [Unknown]
  - Malignant neoplasm progression [Not Recovered/Not Resolved]
  - Haemorrhage intracranial [Unknown]
  - Dizziness [Unknown]
  - Hypoacusis [Unknown]

NARRATIVE: CASE EVENT DATE: 201701
